FAERS Safety Report 5634849-4 (Version None)
Quarter: 2008Q1

REPORT INFORMATION
  Report Type: 
  Country: None (occurrence: None)
  Receive Date: 20080131
  Receipt Date: 20071107
  Transmission Date: 20080703
  Serious: No
  Sender: FDA-Public Use
  Company Number: 163-21880-07110511

PATIENT
  Sex: Male

DRUGS (10)
  1. REVLIMID [Suspect]
     Indication: MULTIPLE MYELOMA
     Dosage: SEE IMAGE
     Route: 048
     Dates: start: 20070924
  2. REVLIMID [Suspect]
     Indication: MULTIPLE MYELOMA
     Dosage: SEE IMAGE
     Route: 048
     Dates: start: 20071019
  3. REVLIMID [Suspect]
     Indication: MULTIPLE MYELOMA
     Dosage: SEE IMAGE
     Route: 048
     Dates: start: 20071102
  4. DEXAMETHASONE TAB [Concomitant]
  5. ASPIRIN [Concomitant]
  6. OMEPRAZOLE [Concomitant]
  7. FLONASE [Concomitant]
  8. ENDOCET (OXYCOCET) [Concomitant]
  9. ZOLPIDEM [Concomitant]
  10. BLOOD TRANSFUSION (BLOOD TRANSFUSION, AUXILIARY PRODUCTS) [Concomitant]

REACTIONS (6)
  - BLOOD CREATININE INCREASED [None]
  - EPISTAXIS [None]
  - HAEMATURIA [None]
  - HAEMOGLOBIN DECREASED [None]
  - PANCYTOPENIA [None]
  - THROMBOCYTOPENIA [None]
